FAERS Safety Report 7305944-9 (Version None)
Quarter: 2011Q1

REPORT INFORMATION
  Report Type: 
  Country: None (occurrence: None)
  Receive Date: 20110222
  Receipt Date: 20110208
  Transmission Date: 20110831
  Serious: Yes (Other)
  Sender: FDA-Public Use
  Company Number: GB-WATSON-2011-01460

PATIENT
  Age: 21 Year
  Sex: Female

DRUGS (5)
  1. ACETAZOLAMIDE [Suspect]
     Indication: EPILEPSY
     Dosage: 125 MG, DAILY
  2. KEPPRA [Suspect]
     Indication: EPILEPSY
     Dosage: 250 MG, BID
  3. CLONAZEPAM [Suspect]
     Indication: EPILEPSY
     Dosage: 0.25 MG, PRN
  4. LAMOTRIGINE [Suspect]
     Indication: EPILEPSY
     Dosage: 125 MG, DAILY
  5. KEPPRA [Suspect]
     Dosage: UNK

REACTIONS (7)
  - FEELING ABNORMAL [None]
  - MUSCLE TWITCHING [None]
  - FATIGUE [None]
  - GRAND MAL CONVULSION [None]
  - SPEECH DISORDER [None]
  - FEAR [None]
  - NERVOUSNESS [None]
